FAERS Safety Report 22617930 (Version 2)
Quarter: 2024Q3

REPORT INFORMATION
  Report Type: Spontaneous
  Country: US (occurrence: US)
  Receive Date: 20230620
  Receipt Date: 20240711
  Transmission Date: 20241016
  Serious: No
  Sender: PIERRE FABRE MEDICAMENT
  Company Number: US-PFM-2022-06450

PATIENT
  Sex: Female
  Weight: 7.4 kg

DRUGS (1)
  1. HEMANGEOL [Suspect]
     Active Substance: PROPRANOLOL HYDROCHLORIDE
     Indication: Haemangioma
     Dosage: 3.5 ML, BID (2/DAY)
     Route: 048

REACTIONS (3)
  - Haemangioma [Unknown]
  - Condition aggravated [Unknown]
  - Peripheral coldness [Unknown]
